FAERS Safety Report 6142746-3 (Version None)
Quarter: 2009Q2

REPORT INFORMATION
  Report Type: 
  Country: None (occurrence: None)
  Receive Date: 20090403
  Receipt Date: 20090330
  Transmission Date: 20091009
  Serious: Yes (Other)
  Sender: FDA-Public Use
  Company Number: US-AMGEN-QUU274913

PATIENT
  Sex: Female
  Weight: 59.9 kg

DRUGS (12)
  1. ENBREL [Suspect]
     Indication: RHEUMATOID ARTHRITIS
     Route: 058
     Dates: start: 20080201, end: 20090108
  2. PLAQUENIL [Concomitant]
     Dates: start: 20060101
  3. PREVACID [Concomitant]
     Dates: start: 20060101
  4. WELLBUTRIN [Concomitant]
     Dates: start: 20060101
  5. OXYCODONE HCL [Concomitant]
     Dates: start: 20060101
  6. SYNTHROID [Concomitant]
     Dates: start: 20050101
  7. CLONAZEPAM [Concomitant]
     Dates: start: 20060101
  8. ABILIFY [Concomitant]
     Dates: start: 20070101
  9. ACTONEL [Concomitant]
     Dates: start: 20070101
  10. ALEVE [Concomitant]
     Dates: start: 20060101
  11. BENTYL [Concomitant]
     Dates: start: 20060101
  12. CYCLOSPORINE [Concomitant]

REACTIONS (7)
  - CYANOSIS [None]
  - DEPRESSION [None]
  - FATIGUE [None]
  - LIVEDO RETICULARIS [None]
  - PAIN [None]
  - POLYARTHRITIS [None]
  - SYSTEMIC LUPUS ERYTHEMATOSUS [None]
